FAERS Safety Report 24671666 (Version 3)
Quarter: 2025Q4

REPORT INFORMATION
  Report Type: Spontaneous
  Country: US (occurrence: US)
  Receive Date: 20241127
  Receipt Date: 20251125
  Transmission Date: 20260117
  Serious: No
  Sender: BELCHER PHARMACEUTICALS
  Company Number: US-BELCHER PHARMACEUTICALS, LLC-2024US004284

PATIENT

DRUGS (2)
  1. TIRZEPATIDE [Suspect]
     Active Substance: TIRZEPATIDE
     Indication: Product used for unknown indication
     Dosage: 30 MG/3 ML (10 MG/ ML) (BEEN ON THIS MEDICATION SINCE 6 MONTHS), (WAS TAKING 15 UNITS (2 SHOTS) INST
     Route: 065
     Dates: start: 2024, end: 2024
  2. TIRZEPATIDE [Suspect]
     Active Substance: TIRZEPATIDE
     Dosage: 30 MG/3 ML (10 MG/ ML), (WAS TAKING 15 UNITS (2 SHOTS) INSTEAD OF THE 7.5 I THAT WAS PRESCRIBED)
     Route: 065
     Dates: start: 20241116, end: 2024

REACTIONS (3)
  - Blood pressure increased [Unknown]
  - Headache [Unknown]
  - Incorrect dose administered [Unknown]

NARRATIVE: CASE EVENT DATE: 20241116
